FAERS Safety Report 19361905 (Version 4)
Quarter: 2021Q4

REPORT INFORMATION
  Report Type: Spontaneous
  Country: US (occurrence: US)
  Receive Date: 20210603
  Receipt Date: 20211122
  Transmission Date: 20220303
  Serious: Yes (Hospitalization, Other)
  Sender: FDA-Public Use
  Company Number: US-SA-SAC20210601000925

PATIENT
  Age: 15 Year
  Sex: Male

DRUGS (1)
  1. LUMIZYME [Suspect]
     Active Substance: ALGLUCOSIDASE ALFA
     Indication: Glycogen storage disease type II
     Dosage: 1000 MG, QOW
     Route: 042
     Dates: start: 20201013

REACTIONS (7)
  - Renal failure [Unknown]
  - Neurogenic bladder [Unknown]
  - Chronic respiratory failure [Unknown]
  - Hypoxia [Unknown]
  - Hypercapnia [Unknown]
  - Kidney infection [Unknown]
  - Product dose omission issue [Unknown]

NARRATIVE: CASE EVENT DATE: 20210101
